FAERS Safety Report 7608902-X (Version None)
Quarter: 2011Q3

REPORT INFORMATION
  Report Type: 
  Country: None (occurrence: None)
  Receive Date: 20110714
  Receipt Date: 20110707
  Transmission Date: 20111222
  Serious: Yes (Other)
  Sender: FDA-Public Use
  Company Number: CA-PFIZER INC-2011152849

PATIENT
  Sex: Female

DRUGS (3)
  1. ACETYLSALICYLIC ACID [Concomitant]
     Indication: HYPERTENSION
     Dosage: 1 PILL, 1X/DAY
     Route: 048
     Dates: start: 20010101
  2. XALATAN [Suspect]
     Indication: GLAUCOMA
     Dosage: 1 GTT PER EYE, 1X/DAY
     Route: 047
     Dates: start: 19990101
  3. APO-TRIAZIDE [Concomitant]
     Indication: HYPERTENSION
     Dosage: 1 PILL, 1X/DAY
     Route: 048
     Dates: start: 20010101

REACTIONS (4)
  - ROAD TRAFFIC ACCIDENT [None]
  - GLAUCOMA SURGERY [None]
  - POST-TRAUMATIC NECK SYNDROME [None]
  - CATARACT [None]
